FAERS Safety Report 23677528 (Version 3)
Quarter: 2024Q2

REPORT INFORMATION
  Report Type: Spontaneous
  Country: GB (occurrence: GB)
  Receive Date: 20240327
  Receipt Date: 20240429
  Transmission Date: 20240716
  Serious: No
  Sender: FDA-Public Use
  Company Number: GB-PFIZER INC-PV202400038074

PATIENT
  Age: 58 Year
  Sex: Female

DRUGS (1)
  1. GENOTROPIN [Suspect]
     Active Substance: SOMATROPIN
     Indication: Hypopituitarism
     Dosage: 0.2 MG, 1X/DAY
     Route: 058

REACTIONS (4)
  - Device operational issue [Unknown]
  - Device failure [Unknown]
  - Poor quality device used [Unknown]
  - Incorrect dose administered by device [Unknown]
